FAERS Safety Report 20722155 (Version 1)
Quarter: 2022Q2

REPORT INFORMATION
  Report Type: Spontaneous
  Country: CG (occurrence: CD)
  Receive Date: 20220418
  Receipt Date: 20220418
  Transmission Date: 20220721
  Serious: No
  Sender: FDA-Public Use
  Company Number: CG-LUPIN PHARMACEUTICALS INC.-2022-05580

PATIENT
  Age: 72 Year
  Sex: Male

DRUGS (20)
  1. AZITHROMYCIN [Suspect]
     Active Substance: AZITHROMYCIN
     Indication: COVID-19
     Dosage: UNK
     Route: 065
     Dates: start: 202106
  2. CEFTRIAXONE [Suspect]
     Active Substance: CEFTRIAXONE
     Indication: COVID-19
     Dosage: UNK
     Route: 065
     Dates: start: 202107
  3. VANCOMYCIN [Suspect]
     Active Substance: VANCOMYCIN
     Indication: COVID-19
     Dosage: UNK
     Route: 065
     Dates: start: 202107
  4. DEXAMETHASONE [Suspect]
     Active Substance: DEXAMETHASONE
     Indication: COVID-19
     Dosage: UNK
     Route: 065
     Dates: start: 202107
  5. PREDNISONE [Suspect]
     Active Substance: PREDNISONE
     Indication: COVID-19
     Dosage: UNK
     Route: 065
     Dates: start: 202106
  6. IMIPENEM [Suspect]
     Active Substance: IMIPENEM
     Indication: COVID-19
     Dosage: UNK
     Route: 065
     Dates: start: 202107
  7. OFLOXACIN [Suspect]
     Active Substance: OFLOXACIN
     Indication: COVID-19
     Dosage: UNK
     Route: 065
     Dates: start: 202107
  8. AMIKACIN [Suspect]
     Active Substance: AMIKACIN
     Indication: COVID-19
     Dosage: UNK
     Route: 065
     Dates: start: 202107
  9. HEPARIN [Suspect]
     Active Substance: HEPARIN SODIUM
     Indication: Anticoagulant therapy
     Dosage: UNK
     Route: 065
     Dates: start: 2021
  10. HYDROCHLOROTHIAZIDE [Concomitant]
     Active Substance: HYDROCHLOROTHIAZIDE
     Indication: Hypertension
     Dosage: UNK
     Route: 065
  11. IRBESARTAN [Concomitant]
     Active Substance: IRBESARTAN
     Indication: Hypertension
     Dosage: UNK
     Route: 065
     Dates: start: 2021, end: 2021
  12. MANIDIPINE [Concomitant]
     Active Substance: MANIDIPINE
     Indication: Hypertension
     Dosage: UNK
     Route: 065
  13. FLECAINIDE [Concomitant]
     Active Substance: FLECAINIDE
     Indication: Hypertension
     Dosage: UNK
     Route: 065
  14. RIVAROXABAN [Concomitant]
     Active Substance: RIVAROXABAN
     Indication: Anticoagulant therapy
     Dosage: UNK
     Route: 065
     Dates: start: 202106
  15. VITAMIN C [Concomitant]
     Active Substance: ASCORBIC ACID
     Indication: Vitamin supplementation
     Dosage: UNK
     Route: 065
     Dates: start: 202106
  16. VITAMIN D [Concomitant]
     Active Substance: VITAMIN D NOS
     Indication: Vitamin supplementation
     Dosage: UNK
     Route: 065
     Dates: start: 202106
  17. ENOXAPARIN [Concomitant]
     Active Substance: ENOXAPARIN
     Indication: Anticoagulant therapy
     Dosage: 1 MILLIGRAM/KILOGRAM, BID
     Route: 058
     Dates: start: 202107
  18. NOREPINEPHRINE [Concomitant]
     Active Substance: NOREPINEPHRINE
     Indication: Drug therapy
     Dosage: UNK
     Route: 065
     Dates: start: 202107
  19. DOBUTAMINE [Concomitant]
     Active Substance: DOBUTAMINE HYDROCHLORIDE
     Indication: Drug therapy
     Dosage: UNK
     Route: 065
     Dates: start: 202107
  20. REPAGLINIDE [Concomitant]
     Active Substance: REPAGLINIDE
     Indication: Diabetes mellitus
     Dosage: UNK
     Route: 048

REACTIONS (1)
  - Off label use [Unknown]

NARRATIVE: CASE EVENT DATE: 20210101
